FAERS Safety Report 24205444 (Version 2)
Quarter: 2024Q3

REPORT INFORMATION
  Report Type: Report from Study
  Country: US (occurrence: None)
  Receive Date: 20240813
  Receipt Date: 20240918
  Transmission Date: 20241017
  Serious: Yes (Other)
  Sender: ASTRAZENECA
  Company Number: 2024A177626

PATIENT
  Sex: Female

DRUGS (1)
  1. SAPHNELO [Suspect]
     Active Substance: ANIFROLUMAB-FNIA
     Dosage: UNKNOWN

REACTIONS (21)
  - Cerebral haemorrhage [Unknown]
  - Cerebrovascular disorder [Unknown]
  - Back pain [Unknown]
  - Systemic lupus erythematosus [Unknown]
  - Hypertension [Unknown]
  - Headache [Unknown]
  - Visual impairment [Unknown]
  - Pain [Unknown]
  - Muscular weakness [Unknown]
  - Fatigue [Unknown]
  - Nausea [Unknown]
  - Vomiting [Unknown]
  - Abdominal pain [Unknown]
  - Oedema peripheral [Unknown]
  - Rash [Unknown]
  - Drug interaction [Unknown]
  - Depression [Unknown]
  - Rheumatoid arthritis [Unknown]
  - Autoimmune disorder [Unknown]
  - Abdominal pain upper [Unknown]
  - Inflammation [Unknown]
